FAERS Safety Report 12375132 (Version 1)
Quarter: 2016Q2

REPORT INFORMATION
  Report Type: Spontaneous
  Country: US (occurrence: None)
  Receive Date: 20160516
  Receipt Date: 20160516
  Transmission Date: 20160815
  Serious: Yes (Disabling)
  Sender: FDA-Public Use
  Company Number: None

PATIENT
  Age: 59 Year
  Sex: Female
  Weight: 83.46 kg

DRUGS (8)
  1. POTASSIUM [Concomitant]
     Active Substance: POTASSIUM
  2. PIROXICAM. [Concomitant]
     Active Substance: PIROXICAM
  3. LISINOPRIL. [Concomitant]
     Active Substance: LISINOPRIL
  4. LEVOFLOXACIN, 500MG DR REDDYS LAB [Suspect]
     Active Substance: LEVOFLOXACIN
     Indication: BRONCHITIS
     Route: 048
     Dates: start: 20160202, end: 20160211
  5. ATORVASTATIN [Concomitant]
     Active Substance: ATORVASTATIN
  6. FAMOTIDINE. [Concomitant]
     Active Substance: FAMOTIDINE
  7. HYDROCHLOROTHIAZIDE. [Concomitant]
     Active Substance: HYDROCHLOROTHIAZIDE
  8. FLUOXETINE [Concomitant]
     Active Substance: FLUOXETINE HYDROCHLORIDE

REACTIONS (11)
  - Activities of daily living impaired [None]
  - Joint range of motion decreased [None]
  - Arthralgia [None]
  - Hypoaesthesia [None]
  - Tendon pain [None]
  - Muscular weakness [None]
  - Pain in extremity [None]
  - Musculoskeletal pain [None]
  - Muscle twitching [None]
  - Paraesthesia [None]
  - Tendon disorder [None]

NARRATIVE: CASE EVENT DATE: 20160208
